FAERS Safety Report 7900337-5 (Version None)
Quarter: 2011Q4

REPORT INFORMATION
  Report Type: 
  Country: None (occurrence: None)
  Receive Date: 20111108
  Receipt Date: 20111027
  Transmission Date: 20120403
  Serious: Yes (Other)
  Sender: FDA-Public Use
  Company Number: US-JNJFOC-20110911797

PATIENT
  Sex: Female
  Weight: 48.4 kg

DRUGS (8)
  1. VITAMIN D [Concomitant]
     Indication: CROHN'S DISEASE
     Route: 065
     Dates: start: 20110401
  2. REMICADE [Suspect]
     Route: 042
     Dates: start: 20110818, end: 20110914
  3. CALCIUM CARBONATE [Concomitant]
     Indication: CROHN'S DISEASE
     Route: 065
     Dates: start: 20110401
  4. REMICADE [Suspect]
     Route: 042
     Dates: start: 20110427
  5. VANCOMYCIN [Concomitant]
     Indication: CLOSTRIDIAL INFECTION
     Route: 048
     Dates: start: 20110901, end: 20110915
  6. FERROUS SULFATE TAB [Concomitant]
     Indication: ANAEMIA
     Dosage: 65 MG IRON
     Route: 065
     Dates: start: 20110414
  7. IRON SUPPLEMENT [Concomitant]
     Indication: CROHN'S DISEASE
     Route: 065
  8. REMICADE [Suspect]
     Indication: CROHN'S DISEASE
     Route: 042

REACTIONS (9)
  - HYPERSENSITIVITY [None]
  - THROAT IRRITATION [None]
  - SWELLING FACE [None]
  - INFUSION RELATED REACTION [None]
  - LIP SWELLING [None]
  - FLUSHING [None]
  - WHEEZING [None]
  - TINNITUS [None]
  - DYSPNOEA [None]
